FAERS Safety Report 17412360 (Version 5)
Quarter: 2021Q3

REPORT INFORMATION
  Report Type: Spontaneous
  Country: US (occurrence: US)
  Receive Date: 20200213
  Receipt Date: 20210728
  Transmission Date: 20211014
  Serious: No
  Sender: FDA-Public Use
  Company Number: US-BIOGEN-2020BI00838264

PATIENT
  Sex: Female

DRUGS (1)
  1. TYSABRI [Suspect]
     Active Substance: NATALIZUMAB
     Indication: MULTIPLE SCLEROSIS
     Route: 065
     Dates: start: 20200207, end: 202004

REACTIONS (11)
  - Optic neuritis [Unknown]
  - Hypoaesthesia [Unknown]
  - Dizziness postural [Unknown]
  - Muscle spasms [Unknown]
  - Sensitive skin [Unknown]
  - Multiple sclerosis relapse [Unknown]
  - Heart rate increased [Unknown]
  - Infusion site erythema [Unknown]
  - Product dose omission issue [Unknown]
  - Dermatitis contact [Unknown]
  - Pain in extremity [Unknown]

NARRATIVE: CASE EVENT DATE: 2020
